FAERS Safety Report 9433952 (Version 10)
Quarter: 2014Q2

REPORT INFORMATION
  Report Type: Report from Study
  Country: AR (occurrence: AR)
  Receive Date: 20130801
  Receipt Date: 20140412
  Transmission Date: 20141212
  Serious: Yes (Disabling, Other)
  Sender: FDA-Public Use
  Company Number: AR-MERCK-1307ARG016731

PATIENT
  Age: 49 Year
  Sex: Female
  Weight: 66 kg

DRUGS (2)
  1. POSACONAZOLE [Suspect]
     Indication: AMERICAN TRYPANOSOMIASIS
     Dosage: 400 MG, BID
     Route: 048
     Dates: start: 20130422, end: 20130618
  2. BENZNIDAZOLE [Suspect]
     Indication: AMERICAN TRYPANOSOMIASIS
     Dosage: 200 MG, BID
     Route: 048
     Dates: start: 20130422, end: 20130618

REACTIONS (1)
  - Neuropathy peripheral [Recovering/Resolving]
